FAERS Safety Report 16032630 (Version 2)
Quarter: 2019Q1

REPORT INFORMATION
  Report Type: Report from Study
  Country: None (occurrence: US)
  Receive Date: 20190305
  Receipt Date: 20190309
  Transmission Date: 20190418
  Serious: Yes (Other)
  Sender: FDA-Public Use
  Company Number: US-ABBVIE-18K-163-2596988-00

PATIENT
  Age: 63 Year
  Sex: Female
  Weight: 107.6 kg

DRUGS (1)
  1. HUMIRA [Suspect]
     Active Substance: ADALIMUMAB
     Indication: ANKYLOSING SPONDYLITIS
     Route: 058

REACTIONS (7)
  - Paralysis [Unknown]
  - Arthritis [Unknown]
  - Arthrodesis [Unknown]
  - Pain [Unknown]
  - Procedural pain [Not Recovered/Not Resolved]
  - Atrophy [Unknown]
  - Ankylosing spondylitis [Unknown]
